FAERS Safety Report 10696458 (Version 1)
Quarter: 2015Q1

REPORT INFORMATION
  Report Type: Report from Study
  Country: US (occurrence: US)
  Receive Date: 20150107
  Receipt Date: 20150107
  Transmission Date: 20150721
  Serious: No
  Sender: FDA-Public Use
  Company Number: US-GLAXOSMITHKLINE-US2014GSK045773

PATIENT
  Sex: Female

DRUGS (1)
  1. SALBUTAMOL SULPHATE INHALATIONAL POWDER [Suspect]
     Active Substance: ALBUTEROL SULFATE
     Indication: ASTHMA
     Dosage: UNK, U
     Route: 065

REACTIONS (4)
  - Condition aggravated [Unknown]
  - Cough [Unknown]
  - Fear [None]
  - Hyperhidrosis [None]
